FAERS Safety Report 5292652-1 (Version None)
Quarter: 2007Q2

REPORT INFORMATION
  Report Type: 
  Country: None (occurrence: None)
  Receive Date: 20070404
  Receipt Date: 20070328
  Transmission Date: 20071010
  Serious: Yes (Death)
  Sender: FDA-Public Use
  Company Number: 39890

PATIENT
  Age: 6 Month
  Sex: 0

DRUGS (2)
  1. DOXYLAMINE SUCCINATE [Suspect]
  2. DIPHENHYDRAMINE HCL [Suspect]

REACTIONS (2)
  - CHILD ABUSE [None]
  - DRUG TOXICITY [None]
